FAERS Safety Report 25538459 (Version 1)
Quarter: 2025Q3

REPORT INFORMATION
  Report Type: Spontaneous
  Country: US (occurrence: None)
  Receive Date: 20250709
  Receipt Date: 20250709
  Transmission Date: 20251021
  Serious: Yes (Disabling)
  Sender: FDA-CTU
  Company Number: None

PATIENT
  Age: 19 Year
  Sex: Male
  Weight: 103.5 kg

DRUGS (5)
  1. FINASTERIDE [Suspect]
     Active Substance: FINASTERIDE
     Indication: Alopecia
     Dosage: OTHER QUANTITY : 90 TABLET(S);?FREQUENCY : DAILY;?
     Route: 048
     Dates: start: 20240717, end: 20250415
  2. Phentermine 15 mg [Concomitant]
  3. capsules 1QD [Concomitant]
  4. Topiramate ER 100 mg [Concomitant]
  5. capsules 1QD [Concomitant]

REACTIONS (3)
  - Sexual dysfunction [None]
  - Loss of libido [None]
  - Therapy cessation [None]

NARRATIVE: CASE EVENT DATE: 20250418
